FAERS Safety Report 6551944-6 (Version None)
Quarter: 2010Q1

REPORT INFORMATION
  Report Type: 
  Country: None (occurrence: None)
  Receive Date: 20100126
  Receipt Date: 20100116
  Transmission Date: 20100710
  Serious: Yes (Other)
  Sender: FDA-Public Use
  Company Number: US-JNJFOC-20100108158

PATIENT
  Sex: Female

DRUGS (2)
  1. TYLENOL 8 HOUR MUSCLES + PAIN [Suspect]
  2. TYLENOL 8 HOUR MUSCLES + PAIN [Suspect]
     Indication: DRUG USE FOR UNKNOWN INDICATION

REACTIONS (4)
  - MALAISE [None]
  - PRODUCT ODOUR ABNORMAL [None]
  - PRODUCT QUALITY ISSUE [None]
  - VOMITING [None]
